FAERS Safety Report 8386158 (Version 3)
Quarter: 2012Q4

REPORT INFORMATION
  Report Type: 
  Country: IT (occurrence: IT)
  Receive Date: 20120202
  Receipt Date: 20121207
  Transmission Date: 20130627
  Serious: Yes (Other)
  Sender: FDA-Public Use
  Company Number: PHHY2012IT007187

PATIENT
  Age: 47 Year
  Sex: Female

DRUGS (9)
  1. QUETIAPINE [Suspect]
     Indication: PSYCHOTIC DISORDER
     Dosage: 800 mg, per day
  2. QUETIAPINE [Suspect]
     Dosage: 400 mg, per day
  3. SERTRALINE [Suspect]
     Indication: OBSESSIVE-COMPULSIVE DISORDER
     Dosage: 100 mg, per day
  4. SERTRALINE [Suspect]
     Dosage: 200 mg, per day
  5. ZIPRASIDONE [Concomitant]
     Dosage: 160 mg, QD
  6. VALPROATE SEMISODIUM [Concomitant]
     Dosage: 1500 mg, QD
  7. CLONAZEPAM [Concomitant]
     Dosage: 6 mg, QD
  8. LOPERAMIDE HYDROCHLORIDE [Concomitant]
     Dosage: 2 mg, QD
  9. BIPERIDEN [Concomitant]
     Dosage: 4 mg, QD

REACTIONS (3)
  - Pleurothotonus [Recovering/Resolving]
  - Posture abnormal [Recovering/Resolving]
  - Tremor [Recovering/Resolving]
